FAERS Safety Report 4817683-4 (Version None)
Quarter: 2005Q3

REPORT INFORMATION
  Report Type: 
  Country: None (occurrence: None)
  Receive Date: 20050929
  Receipt Date: 20050801
  Transmission Date: 20060218
  Serious: No
  Sender: FDA-Public Use
  Company Number: 05P-163-0307180-00

PATIENT
  Age: 66 Year
  Sex: Female
  Weight: 53.0709 kg

DRUGS (15)
  1. HUMIRA [Suspect]
     Indication: RHEUMATOID ARTHRITIS
     Dosage: 40 MG, 1 IN 2 WK, SUBCUTANEOUS
     Route: 058
     Dates: start: 20040101
  2. CYMETRA [Concomitant]
  3. DIOVAN [Concomitant]
  4. DARVOCET [Concomitant]
  5. ATORVASTATIN CALCIUM [Concomitant]
  6. SEROVENT [Concomitant]
  7. SPIRIVA [Concomitant]
  8. FLUTICASONE PROPIONATE [Concomitant]
  9. OXYGEN [Concomitant]
  10. SINGULAIR [Concomitant]
  11. CLONAZEPAM [Concomitant]
  12. PHENYTOIN SODIUM [Concomitant]
  13. DEPINTITRATAB [Concomitant]
  14. VITAMINS [Concomitant]
  15. TRAZODONE HCL [Concomitant]

REACTIONS (2)
  - ARTHRALGIA [None]
  - INJECTION SITE PAIN [None]
